FAERS Safety Report 14925465 (Version 5)
Quarter: 2018Q3

REPORT INFORMATION
  Report Type: Report from Study
  Country: BR (occurrence: BR)
  Receive Date: 20180522
  Receipt Date: 20180927
  Transmission Date: 20181010
  Serious: Yes (Death, Hospitalization, Other)
  Sender: FDA-Public Use
  Company Number: PHHY2017BR116445

PATIENT
  Age: 75 Year
  Sex: Male
  Weight: 76 kg

DRUGS (6)
  1. ALENIA [Concomitant]
     Active Substance: BUDESONIDE\FORMOTEROL FUMARATE
     Indication: DYSPNOEA
     Dosage: 1 DF, UNK
     Route: 065
  2. ASA [Concomitant]
     Active Substance: ASPIRIN
     Indication: PRODUCT USED FOR UNKNOWN INDICATION
     Route: 065
  3. CARVEDILOL. [Concomitant]
     Active Substance: CARVEDILOL
     Indication: PRODUCT USED FOR UNKNOWN INDICATION
     Route: 065
  4. LOSARTAN. [Concomitant]
     Active Substance: LOSARTAN
     Indication: PRODUCT USED FOR UNKNOWN INDICATION
     Route: 065
  5. CLOROTIAZIDA [Concomitant]
     Active Substance: CHLOROTHIAZIDE
     Indication: PRODUCT USED FOR UNKNOWN INDICATION
     Route: 065
  6. SANDOSTATIN LAR DEPOT [Suspect]
     Active Substance: OCTREOTIDE ACETATE
     Indication: ACROMEGALY
     Dosage: 30 MG, QMO
     Route: 030
     Dates: start: 2014

REACTIONS (32)
  - Loss of consciousness [Recovered/Resolved]
  - Hypoaesthesia [Unknown]
  - Chills [Unknown]
  - Diabetes mellitus [Fatal]
  - Deafness [Unknown]
  - Blood pressure increased [Unknown]
  - Infectious pleural effusion [Not Recovered/Not Resolved]
  - Weight decreased [Unknown]
  - Hunger [Unknown]
  - Movement disorder [Unknown]
  - Injection site reaction [Recovering/Resolving]
  - Syncope [Recovered/Resolved]
  - Hypersomnia [Unknown]
  - Dysphonia [Unknown]
  - Hypersensitivity [Unknown]
  - Pain in extremity [Recovering/Resolving]
  - Fall [Recovered/Resolved]
  - Speech disorder [Recovered/Resolved]
  - Asthenia [Unknown]
  - Dizziness [Unknown]
  - Product administered at inappropriate site [Unknown]
  - Thinking abnormal [Unknown]
  - Product storage error [Unknown]
  - Dyspnoea [Fatal]
  - Malaise [Not Recovered/Not Resolved]
  - Feeling cold [Unknown]
  - Administration site movement impairment [Recovering/Resolving]
  - Hyperhidrosis [Unknown]
  - Paraesthesia [Unknown]
  - Headache [Recovered/Resolved]
  - Injection site pain [Recovered/Resolved]
  - Injection site swelling [Recovered/Resolved]

NARRATIVE: CASE EVENT DATE: 20170725
